FAERS Safety Report 14641914 (Version 1)
Quarter: 2018Q1

REPORT INFORMATION
  Report Type: Report from Study
  Country: FI (occurrence: FI)
  Receive Date: 20180315
  Receipt Date: 20180315
  Transmission Date: 20180509
  Serious: Yes (Hospitalization)
  Sender: FDA-Public Use
  Company Number: PHHO2017FI013800

PATIENT
  Age: 71 Year
  Sex: Female
  Weight: 62 kg

DRUGS (6)
  1. MBG453 [Suspect]
     Active Substance: INVESTIGATIONAL PRODUCT
     Dosage: 240 MG, QW2
     Route: 042
     Dates: start: 20171212
  2. DECITABINE. [Suspect]
     Active Substance: DECITABINE
     Dosage: 34 MG, OT
     Route: 042
     Dates: start: 20171121
  3. MBG453 [Suspect]
     Active Substance: INVESTIGATIONAL PRODUCT
     Indication: ACUTE MYELOID LEUKAEMIA
     Dosage: 240 MG, QW2
     Route: 042
     Dates: start: 20170928, end: 20170928
  4. DECITABINE. [Suspect]
     Active Substance: DECITABINE
     Indication: ACUTE MYELOID LEUKAEMIA
     Dosage: 34 MG, OT
     Route: 042
     Dates: start: 20170921, end: 20170921
  5. THYROXIN [Concomitant]
     Active Substance: LEVOTHYROXINE
     Indication: PRODUCT USED FOR UNKNOWN INDICATION
     Dosage: UNK
     Route: 065
     Dates: start: 200401
  6. ALLOPURINOL. [Concomitant]
     Active Substance: ALLOPURINOL
     Indication: PRODUCT USED FOR UNKNOWN INDICATION
     Dosage: UNK
     Route: 065
     Dates: start: 20170920, end: 20171012

REACTIONS (2)
  - Thrombocytopenia [Recovering/Resolving]
  - Hepatitis [Recovering/Resolving]

NARRATIVE: CASE EVENT DATE: 20171002
